FAERS Safety Report 6556698-5 (Version None)
Quarter: 2010Q1

REPORT INFORMATION
  Report Type: 
  Country: None (occurrence: None)
  Receive Date: 20100125
  Receipt Date: 20100112
  Transmission Date: 20100710
  Serious: Yes (Hospitalization)
  Sender: FDA-Public Use
  Company Number: US-JNJFOC-20091103489

PATIENT
  Age: 68 Year
  Sex: Male
  Weight: 119.7 kg

DRUGS (3)
  1. DECITABINE (DECITABINE) LYOPHILIZED POWDER [Suspect]
     Indication: ACUTE MYELOID LEUKAEMIA
     Dosage: 20 MG/M2, IN 1 DAY, INTRAVENOUS
     Route: 042
     Dates: start: 20090909
  2. AMPHOTERICIN B [Suspect]
     Indication: DRUG USE FOR UNKNOWN INDICATION
     Dosage: 5 MG/KG, IN 12 HOUR, 20 MG/M2, IN 1 DAY, INTRAVENOUS
     Route: 042
     Dates: start: 20091008, end: 20091012
  3. AMPHOTERICIN B [Suspect]
     Indication: DRUG USE FOR UNKNOWN INDICATION
     Dosage: 5 MG/KG, IN 12 HOUR, 20 MG/M2, IN 1 DAY, INTRAVENOUS
     Route: 042
     Dates: start: 20091109

REACTIONS (9)
  - ABDOMINAL PAIN [None]
  - ACUTE MYOCARDIAL INFARCTION [None]
  - ARTHRALGIA [None]
  - FEBRILE NEUTROPENIA [None]
  - HYPOXIA [None]
  - INFUSION RELATED REACTION [None]
  - RASH [None]
  - SKIN EXFOLIATION [None]
  - THROMBOCYTOPENIA [None]
